FAERS Safety Report 13891063 (Version 1)
Quarter: 2017Q3

REPORT INFORMATION
  Report Type: Spontaneous
  Country: RS (occurrence: RS)
  Receive Date: 20170822
  Receipt Date: 20170822
  Transmission Date: 20171127
  Serious: Yes (Other)
  Sender: FDA-Public Use
  Company Number: RS-BAYER-2017-155459

PATIENT
  Age: 24 Year
  Sex: Female

DRUGS (4)
  1. FOLIC ACID. [Concomitant]
     Active Substance: FOLIC ACID
     Dosage: 10 MG, QD
     Route: 048
  2. FOLIC ACID. [Concomitant]
     Active Substance: FOLIC ACID
     Dosage: 5 MG, QD
     Route: 048
  3. ACETYLSALICYLIC ACID({=100 MG) [Suspect]
     Active Substance: ASPIRIN
     Indication: THALASSAEMIA BETA
     Dosage: 100 MG, UNK
     Route: 048
  4. FRAXIPARIN [HEPARIN-FRACTION, CALCIUM SALT] [Concomitant]
     Dosage: 0,3 MU S.C / 24

REACTIONS (4)
  - Product use in unapproved indication [None]
  - Maternal exposure during pregnancy [None]
  - Off label use [None]
  - Abortion missed [None]
